FAERS Safety Report 15035043 (Version 2)
Quarter: 2019Q2

REPORT INFORMATION
  Report Type: Spontaneous
  Country: US (occurrence: US)
  Receive Date: 20180620
  Receipt Date: 20190404
  Transmission Date: 20190711
  Serious: No
  Sender: FDA-Public Use
  Company Number: US-PFIZER INC-2018245208

PATIENT
  Age: 58 Year
  Sex: Female

DRUGS (2)
  1. CELEXA [CELECOXIB] [Concomitant]
     Active Substance: CELECOXIB
     Indication: DEPRESSION
     Dosage: 20 MG, 1X/DAY (EVERY MORNING JUST ONCE)
     Route: 048
  2. LYRICA [Suspect]
     Active Substance: PREGABALIN
     Indication: NEUROPATHY PERIPHERAL
     Dosage: 300 MG, DAILY (150MG CAPSULE / QTY 60 / DAYS SUPPLY 30 )
     Dates: start: 201802

REACTIONS (3)
  - Loss of personal independence in daily activities [Unknown]
  - Drug intolerance [Unknown]
  - Hangover [Unknown]
